FAERS Safety Report 6718686-5 (Version None)
Quarter: 2010Q2

REPORT INFORMATION
  Report Type: 
  Country: None (occurrence: None)
  Receive Date: 20100506
  Receipt Date: 20100423
  Transmission Date: 20101027
  Serious: Yes (Other)
  Sender: FDA-Public Use
  Company Number: IPC201004-000119

PATIENT
  Age: 57 Year
  Sex: Male

DRUGS (11)
  1. METFORMIN HCL [Suspect]
     Dates: start: 19990101, end: 20080101
  2. METFORMIN HCL [Suspect]
     Dates: start: 20040101
  3. GLIMEPIRIDE [Concomitant]
  4. METOPROLOL TARTRATE [Concomitant]
  5. ISOSORBIDE MONONITRATE [Concomitant]
  6. RAMIPRIL [Concomitant]
  7. ATORVASTATIN [Concomitant]
  8. CLOPIDOGREL [Concomitant]
  9. ASPIRIN [Concomitant]
  10. LANSOPRAZOLE [Concomitant]
  11. GLIPIZIDE [Suspect]

REACTIONS (13)
  - ARTHROPATHY [None]
  - BLOOD GLUCOSE INCREASED [None]
  - BLOOD PRESSURE INCREASED [None]
  - DIARRHOEA [None]
  - GLYCOSYLATED HAEMOGLOBIN INCREASED [None]
  - HYPOCALCAEMIA [None]
  - HYPOKALAEMIA [None]
  - HYPOMAGNESAEMIA [None]
  - MALAISE [None]
  - MUCOUS STOOLS [None]
  - MUSCLE SPASMS [None]
  - PARAESTHESIA [None]
  - PARAESTHESIA ORAL [None]
